FAERS Safety Report 9119449 (Version 1)
Quarter: 2013Q1

REPORT INFORMATION
  Report Type: Spontaneous
  Country: US (occurrence: US)
  Receive Date: 20130226
  Receipt Date: 20130226
  Transmission Date: 20140127
  Serious: Yes (Other)
  Sender: FDA-Public Use
  Company Number: US-BAYER-2013-020777

PATIENT
  Age: 21 Year
  Sex: Female

DRUGS (1)
  1. MIRENA [Suspect]
     Indication: CONTRACEPTION
     Dosage: 20 MCG/24HR
     Dates: start: 20110623, end: 20110627

REACTIONS (7)
  - Uterine injury [None]
  - Post procedural haemorrhage [None]
  - Procedural pain [None]
  - Device deployment issue [None]
  - Procedural pain [None]
  - Dysmenorrhoea [None]
  - Dyspareunia [None]
